FAERS Safety Report 4661691-3 (Version None)
Quarter: 2005Q2

REPORT INFORMATION
  Report Type: 
  Country: None (occurrence: None)
  Receive Date: 20050511
  Receipt Date: 20050511
  Transmission Date: 20051028
  Serious: Yes (Hospitalization)
  Sender: FDA-Public Use
  Company Number: None

PATIENT
  Age: 83 Year
  Sex: Male

DRUGS (12)
  1. WARFARIN [Suspect]
     Indication: ATRIAL FIBRILLATION
     Dosage: 4 MG QD
     Dates: start: 20030101
  2. FUROSEMIDE [Concomitant]
  3. GLYBURIDE [Concomitant]
  4. LORTAB [Concomitant]
  5. CITALOPRAM [Concomitant]
  6. FOSINOPRIL [Concomitant]
  7. BACLOFEN [Concomitant]
  8. COLCHICINE [Concomitant]
  9. DILTIAZEM [Concomitant]
  10. ISOSORBIDE [Concomitant]
  11. ZOCOR [Concomitant]
  12. OXYBUTYNIN [Concomitant]

REACTIONS (1)
  - INTERNATIONAL NORMALISED RATIO INCREASED [None]
